FAERS Safety Report 22125013 (Version 1)
Quarter: 2023Q1

REPORT INFORMATION
  Report Type: Spontaneous
  Country: US (occurrence: None)
  Receive Date: 20230321
  Receipt Date: 20230321
  Transmission Date: 20230417
  Serious: Yes (Hospitalization)
  Sender: FDA-Public Use
  Company Number: None

PATIENT
  Sex: Male

DRUGS (21)
  1. LUCENTIS [Suspect]
     Active Substance: RANIBIZUMAB
     Indication: Neovascular age-related macular degeneration
     Dosage: INJECT 1 SYRINGE INTRAVITREALLY TO RIGHT EYE EVERY 30 DAYS?
     Route: 042
     Dates: start: 20211214
  2. ALLOURINOL TAB [Concomitant]
  3. ASPIRIN TAB [Concomitant]
  4. CENTRUM CHW SILVER [Concomitant]
  5. COQ10 CAP [Concomitant]
  6. FINASTERIDE [Concomitant]
     Active Substance: FINASTERIDE
  7. FLOMAX CAP [Concomitant]
  8. FUROSEMIDE TAB [Concomitant]
  9. GINKGO BILOB CAP [Concomitant]
  10. HYDRALAZINE TAB [Concomitant]
  11. LEVOTHYROXIN TAB [Concomitant]
  12. LIPOFLAVON TAB [Concomitant]
  13. LOVAZA CAP [Concomitant]
  14. METFORMIN TAB [Concomitant]
  15. METOPROL TAR TAB [Concomitant]
  16. OMEGA-3 ACIDS [Concomitant]
     Active Substance: OMEGA-3 FATTY ACIDS
  17. PRESERVISION CAP AREDS [Concomitant]
  18. PROTONIX TAB [Concomitant]
  19. RAMIPRIL CAP [Concomitant]
  20. SIMVASTATIN [Concomitant]
     Active Substance: SIMVASTATIN
  21. XANAX TAB [Concomitant]

REACTIONS (1)
  - Hospitalisation [None]
